FAERS Safety Report 12346309 (Version 1)
Quarter: 2016Q2

REPORT INFORMATION
  Report Type: Spontaneous
  Country: US (occurrence: None)
  Receive Date: 20160506
  Receipt Date: 20160506
  Transmission Date: 20160815
  Serious: Yes (Other)
  Sender: FDA-Public Use
  Company Number: None

PATIENT
  Age: 41 Year
  Sex: Female
  Weight: 72.58 kg

DRUGS (1)
  1. TRESIBA [Suspect]
     Active Substance: INSULIN DEGLUDEC
     Indication: DIABETES MELLITUS
     Route: 058
     Dates: start: 20160503, end: 20160504

REACTIONS (3)
  - Stevens-Johnson syndrome [None]
  - Sunburn [None]
  - Rash generalised [None]

NARRATIVE: CASE EVENT DATE: 20160504
